FAERS Safety Report 11643881 (Version 1)
Quarter: 2015Q4

REPORT INFORMATION
  Report Type: Spontaneous
  Country: US (occurrence: None)
  Receive Date: 20151019
  Receipt Date: 20151019
  Transmission Date: 20160304
  Serious: Yes (Hospitalization)
  Sender: FDA-Public Use
  Company Number: None

PATIENT

DRUGS (8)
  1. ASPIRIN 81 MG EC LOW DOSE TABLETS [Concomitant]
  2. FINEST NUTRITION ENERGY METABOLISM B-COMPLEX [Concomitant]
  3. HUMALOG 100U/ML KWIKPEN [Concomitant]
  4. FAMOTIDINE. [Concomitant]
     Active Substance: FAMOTIDINE
  5. AZOR [Concomitant]
     Active Substance: AMLODIPINE BESYLATE\OLMESARTAN MEDOXOMIL
  6. CRESTOR [Concomitant]
     Active Substance: ROSUVASTATIN CALCIUM
  7. LEVEMIR [Suspect]
     Active Substance: INSULIN DETEMIR
     Indication: TYPE 2 DIABETES MELLITUS
     Dosage: 5X3 ML  40 UNITS EVERY NIGHT AT BEDTIME INJECTION
     Dates: start: 20140107, end: 20150908
  8. OMEPRAZOLE. [Concomitant]
     Active Substance: OMEPRAZOLE

REACTIONS (17)
  - Vision blurred [None]
  - Hunger [None]
  - Heart rate increased [None]
  - Headache [None]
  - Swollen tongue [None]
  - Tinnitus [None]
  - Dry eye [None]
  - Nasal dryness [None]
  - Dry throat [None]
  - Confusional state [None]
  - Anxiety [None]
  - Irritability [None]
  - Mood altered [None]
  - Dysarthria [None]
  - Weight decreased [None]
  - Dizziness [None]
  - Tremor [None]

NARRATIVE: CASE EVENT DATE: 201401
